FAERS Safety Report 9701636 (Version 1)
Quarter: 2013Q4

REPORT INFORMATION
  Report Type: Spontaneous
  Country: US (occurrence: US)
  Receive Date: 20131119
  Receipt Date: 20131119
  Transmission Date: 20140711
  Serious: No
  Sender: FDA-Public Use
  Company Number: US-ORACLE-2011S1000066

PATIENT
  Age: 46 Year
  Sex: Male
  Weight: 82.56 kg

DRUGS (3)
  1. KRYSTEXXA INJECTION [Suspect]
     Indication: GOUT
     Route: 042
     Dates: start: 20110728, end: 20110728
  2. KRYSTEXXA INJECTION [Suspect]
     Indication: GOUT
     Route: 042
     Dates: start: 20110810, end: 20110810
  3. COLCHICINE [Concomitant]
     Indication: GOUT

REACTIONS (1)
  - Therapeutic response decreased [Unknown]
